FAERS Safety Report 20355518 (Version 2)
Quarter: 2022Q2

REPORT INFORMATION
  Report Type: Report from Study
  Country: CA (occurrence: CA)
  Receive Date: 20220120
  Receipt Date: 20220604
  Transmission Date: 20220720
  Serious: Yes (Other)
  Sender: FDA-Public Use
  Company Number: None

PATIENT
  Age: 78 Year
  Sex: Male

DRUGS (7)
  1. MYCOPHENOLATE MOFETIL [Suspect]
     Active Substance: MYCOPHENOLATE MOFETIL
     Indication: Rheumatoid arthritis
     Dosage: 2 EVERY 1 DAYS
     Route: 048
  2. RITUXIMAB [Suspect]
     Active Substance: RITUXIMAB
     Indication: Rheumatoid arthritis
     Dosage: 1 EVERY 15 DAYS
     Route: 042
  3. AMLODIPINE [Concomitant]
     Active Substance: AMLODIPINE BESYLATE
     Route: 065
  4. AZATHIOPRINE [Concomitant]
     Active Substance: AZATHIOPRINE
     Indication: Rheumatoid arthritis
     Route: 048
  5. MESTINON [Concomitant]
     Active Substance: PYRIDOSTIGMINE BROMIDE
     Route: 065
  6. PREDNISONE [Concomitant]
     Active Substance: PREDNISONE
     Dosage: 1 EVERY 1 DAYS
     Route: 048
  7. XARELTO [Concomitant]
     Active Substance: RIVAROXABAN

REACTIONS (12)
  - C-reactive protein increased [Unknown]
  - Eyelid ptosis [Unknown]
  - Off label use [Unknown]
  - Fluid retention [Unknown]
  - Haematocrit decreased [Unknown]
  - Interstitial lung disease [Unknown]
  - Myasthenia gravis [Unknown]
  - Red blood cell count decreased [Unknown]
  - Red blood cell sedimentation rate increased [Unknown]
  - Somnolence [Unknown]
  - Synovitis [Unknown]
  - Intentional product use issue [Unknown]
